FAERS Safety Report 18162268 (Version 5)
Quarter: 2020Q4

REPORT INFORMATION
  Report Type: Spontaneous
  Country: CN (occurrence: CN)
  Receive Date: 20200818
  Receipt Date: 20201027
  Transmission Date: 20210113
  Serious: Yes (Death, Hospitalization, Other)
  Sender: FDA-Public Use
  Company Number: CN-BRACCO-2020CN03260

PATIENT
  Age: 38 Year
  Sex: Female

DRUGS (5)
  1. EUTHYROX [Concomitant]
     Active Substance: LEVOTHYROXINE SODIUM
     Dosage: 62.5 MICROGRAM, QD
  2. SONOVUE [Suspect]
     Active Substance: SULFUR HEXAFLUORIDE
     Indication: ULTRASOUND THYROID
     Dosage: 2.4 ML, SINGLE
     Route: 042
     Dates: start: 20200810, end: 20200810
  3. SONOVUE [Suspect]
     Active Substance: SULFUR HEXAFLUORIDE
     Indication: ULTRASOUND THYROID
     Dosage: 2.4 ML, SINGLE
     Route: 042
     Dates: start: 20200810, end: 20200810
  4. SODIUM CHLORIDE. [Concomitant]
     Active Substance: SODIUM CHLORIDE
     Dosage: 10 ML
     Route: 042
     Dates: start: 20200810, end: 20200810
  5. SONOVUE [Suspect]
     Active Substance: SULFUR HEXAFLUORIDE
     Indication: ULTRASOUND THYROID
     Dosage: 2.4 ML, SINGLE
     Route: 042
     Dates: start: 20200810, end: 20200810

REACTIONS (7)
  - Multiple organ dysfunction syndrome [Fatal]
  - Disseminated intravascular coagulation [Fatal]
  - Erythema [Fatal]
  - Off label use [Unknown]
  - Malaise [Fatal]
  - Anaphylactic shock [Fatal]
  - Headache [Fatal]

NARRATIVE: CASE EVENT DATE: 202008
